APPROVED DRUG PRODUCT: NICOTINE POLACRILEX
Active Ingredient: NICOTINE POLACRILEX
Strength: EQ 4MG BASE
Dosage Form/Route: GUM, CHEWING;BUCCAL
Application: A076568 | Product #002
Applicant: P AND L DEVELOPMENT LLC
Approved: Jul 29, 2004 | RLD: No | RS: No | Type: OTC